FAERS Safety Report 9194742 (Version 1)
Quarter: 2013Q1

REPORT INFORMATION
  Report Type: Spontaneous
  Country: None (occurrence: US)
  Receive Date: 20130327
  Receipt Date: 20130327
  Transmission Date: 20140127
  Serious: No
  Sender: FDA-Public Use
  Company Number: US-ALLERGAN-1208319US

PATIENT
  Age: 53 Year
  Sex: Female

DRUGS (2)
  1. LATISSE 0.03% [Suspect]
     Indication: GROWTH OF EYELASHES
     Dosage: 2 GTT, UNK
     Route: 061
     Dates: start: 201006, end: 201010
  2. SYSTANE [Concomitant]
     Indication: EYE LUBRICATION THERAPY
     Dosage: 2 GTT, PRN
     Route: 047
     Dates: start: 2010

REACTIONS (4)
  - Wrong technique in drug usage process [Unknown]
  - Eye irritation [Recovering/Resolving]
  - Eye discharge [Not Recovered/Not Resolved]
  - Vision blurred [Recovering/Resolving]
